FAERS Safety Report 8577620-6 (Version None)
Quarter: 2012Q3

REPORT INFORMATION
  Report Type: 
  Country: None (occurrence: None)
  Receive Date: 20120807
  Receipt Date: 20120731
  Transmission Date: 20120928
  Serious: Yes (Hospitalization)
  Sender: FDA-Public Use
  Company Number: FR-BAXTER-2012BAX006355

PATIENT
  Sex: Male

DRUGS (12)
  1. DOXORUBICIN HCL [Suspect]
     Indication: LYMPHOMA
     Route: 042
     Dates: start: 20100506, end: 20100901
  2. ACETAMINOPHEN [Concomitant]
     Indication: PREMEDICATION
     Route: 065
     Dates: start: 20111101, end: 20120401
  3. MABTHERA [Suspect]
     Dosage: ONCE IN 28 DAYS
     Route: 042
     Dates: start: 20100506, end: 20100901
  4. VINCRISTINE [Suspect]
     Indication: LYMPHOMA
     Route: 042
     Dates: start: 20100506, end: 20100901
  5. CYCLOPHOSPHAMIDE [Suspect]
     Indication: LYMPHOMA
     Route: 048
     Dates: start: 20100506, end: 20100905
  6. MABTHERA [Suspect]
     Indication: LYMPHOMA
     Dosage: 800 MG DAY 1, THEN 780 MG
     Route: 042
     Dates: start: 20080425, end: 20080516
  7. METHYLPREDNISOLONE [Suspect]
     Indication: PREMEDICATION
     Route: 042
     Dates: start: 20100506, end: 20100901
  8. MABTHERA [Suspect]
     Route: 042
     Dates: start: 20101116, end: 20120401
  9. POLARAMINE [Concomitant]
     Indication: PREMEDICATION
     Route: 065
     Dates: start: 20111101, end: 20120401
  10. METHYLPREDNISOLONE [Suspect]
     Route: 042
     Dates: start: 20101116, end: 20120401
  11. METHYLPREDNISOLONE [Suspect]
     Route: 042
     Dates: start: 20080425, end: 20080516
  12. PREDNISOLONE [Suspect]
     Indication: LYMPHOMA
     Route: 048
     Dates: start: 20100507, end: 20100905

REACTIONS (1)
  - MALIGNANT MELANOMA [None]
